FAERS Safety Report 16269087 (Version 2)
Quarter: 2019Q2

REPORT INFORMATION
  Report Type: Report from Study
  Country: None (occurrence: US)
  Receive Date: 20190503
  Receipt Date: 20190627
  Transmission Date: 20190711
  Serious: Yes (Other)
  Sender: FDA-Public Use
  Company Number: US-ABBVIE-19S-163-2763800-00

PATIENT
  Age: 69 Year
  Sex: Male
  Weight: 81.72 kg

DRUGS (1)
  1. CREON [Suspect]
     Active Substance: PANCRELIPASE AMYLASE\PANCRELIPASE LIPASE\PANCRELIPASE PROTEASE
     Indication: PANCREATITIS
     Dosage: 2 CAPS W/ MEALS 1 CAP W/ SNACK
     Route: 048
     Dates: start: 201807

REACTIONS (9)
  - Pancreatitis chronic [Recovered/Resolved]
  - Pancreatic duct dilatation [Unknown]
  - Stent removal [Unknown]
  - Pancreatitis chronic [Unknown]
  - Hypertension [Recovered/Resolved]
  - Diarrhoea [Unknown]
  - Diabetes mellitus [Unknown]
  - Cardiac failure congestive [Unknown]
  - Pancreatolithiasis [Unknown]

NARRATIVE: CASE EVENT DATE: 20181025
